FAERS Safety Report 5816604-5 (Version None)
Quarter: 2008Q3

REPORT INFORMATION
  Report Type: 
  Country: None (occurrence: None)
  Receive Date: 20080717
  Receipt Date: 20080311
  Transmission Date: 20090109
  Serious: Yes (Hospitalization)
  Sender: FDA-Public Use
  Company Number: 2008SP004993

PATIENT
  Age: 53 Year
  Sex: Female

DRUGS (9)
  1. INTEGRILIN [Suspect]
     Indication: ANGINA UNSTABLE
     Dates: start: 20080131, end: 20080201
  2. INTEGRILIN [Suspect]
     Indication: CATHETER PLACEMENT
     Dates: start: 20080131, end: 20080201
  3. INTEGRILIN [Suspect]
     Indication: ANGINA UNSTABLE
     Dates: start: 20080202, end: 20080206
  4. INTEGRILIN [Suspect]
     Indication: CATHETER PLACEMENT
     Dates: start: 20080202, end: 20080206
  5. INTEGRILIN [Suspect]
     Indication: ANGINA UNSTABLE
     Dates: start: 20080207
  6. INTEGRILIN [Suspect]
     Indication: CATHETER PLACEMENT
     Dates: start: 20080207
  7. METOPROLOL TARTRATE [Concomitant]
  8. ASPIRIN [Concomitant]
  9. PLAVIX [Concomitant]

REACTIONS (1)
  - THROMBOCYTOPENIA [None]
